FAERS Safety Report 11272151 (Version 1)
Quarter: 2015Q3

REPORT INFORMATION
  Report Type: Spontaneous
  Country: US (occurrence: US)
  Receive Date: 20150715
  Receipt Date: 20150715
  Transmission Date: 20151125
  Serious: Yes (Other)
  Sender: FDA-Public Use
  Company Number: US-AMGEN-USASP2015069301

PATIENT
  Age: 73 Year
  Sex: Male

DRUGS (1)
  1. NEULASTA [Suspect]
     Active Substance: PEGFILGRASTIM
     Indication: PRODUCT USED FOR UNKNOWN INDICATION
     Dosage: UNK UNK, UNK
     Route: 065

REACTIONS (7)
  - Loss of consciousness [Unknown]
  - Tremor [Unknown]
  - Mobility decreased [Unknown]
  - Memory impairment [Unknown]
  - Visual acuity reduced [Unknown]
  - Grip strength decreased [Unknown]
  - Cerebrovascular accident [Unknown]
